FAERS Safety Report 19358046 (Version 3)
Quarter: 2024Q2

REPORT INFORMATION
  Report Type: Other
  Country: BE (occurrence: None)
  Receive Date: 20210601
  Receipt Date: 20240522
  Transmission Date: 20240717
  Serious: Yes (Other)
  Sender: FDA-Public Use
  Company Number: BE-ROCHE-2837448

PATIENT
  Age: 68 Year
  Sex: Male

DRUGS (2)
  1. OBINUTUZUMAB [Suspect]
     Active Substance: OBINUTUZUMAB
     Indication: Follicular lymphoma stage III
     Route: 042
  2. BUPIVACAINE [Suspect]
     Active Substance: BUPIVACAINE
     Indication: Anaesthesia
     Route: 065

REACTIONS (3)
  - Paraplegia [Unknown]
  - Myelitis transverse [Unknown]
  - Hypoaesthesia [Unknown]
